FAERS Safety Report 4497390-0 (Version None)
Quarter: 2004Q4

REPORT INFORMATION
  Report Type: 
  Country: None (occurrence: None)
  Receive Date: 20041104
  Receipt Date: 20041022
  Transmission Date: 20050328
  Serious: Yes (Other)
  Sender: FDA-Public Use
  Company Number: 2004082868

PATIENT
  Sex: 0

DRUGS (1)
  1. GEODON [Suspect]
     Indication: ILL-DEFINED DISORDER

REACTIONS (3)
  - GENERAL SYMPTOM [None]
  - HEMIPLEGIA [None]
  - SWOLLEN TONGUE [None]
